FAERS Safety Report 7751869-4 (Version None)
Quarter: 2011Q3

REPORT INFORMATION
  Report Type: 
  Country: None (occurrence: None)
  Receive Date: 20110914
  Receipt Date: 20110914
  Transmission Date: 20111222
  Serious: Yes (Hospitalization)
  Sender: FDA-Public Use
  Company Number: None

PATIENT
  Age: 66 Year
  Sex: Female
  Weight: 47.2 kg

DRUGS (2)
  1. PANITUMIMAB [Suspect]
     Indication: COLON CANCER
     Dosage: 314 MG IV
     Route: 042
     Dates: start: 20101222
  2. DECITABINE [Suspect]
     Dosage: 68 MG IV
     Route: 042
     Dates: start: 20101215

REACTIONS (6)
  - BACK PAIN [None]
  - ABDOMINAL PAIN [None]
  - DYSPEPSIA [None]
  - NAUSEA [None]
  - UNEVALUABLE EVENT [None]
  - ABDOMINAL PAIN UPPER [None]
